FAERS Safety Report 14069304 (Version 1)
Quarter: 2017Q4

REPORT INFORMATION
  Report Type: Report from Study
  Country: US (occurrence: US)
  Receive Date: 20171010
  Receipt Date: 20171010
  Transmission Date: 20180321
  Serious: Yes (Life-Threatening, Hospitalization)
  Sender: FDA-Public Use
  Company Number: US-PFIZER INC-2016378096

PATIENT
  Age: 58 Year
  Sex: Male
  Weight: 68.16 kg

DRUGS (22)
  1. ROXICODONE [Concomitant]
     Active Substance: OXYCODONE HYDROCHLORIDE
     Indication: PAIN
     Dosage: UNK
     Dates: start: 20160413
  2. MYLOTARG [Suspect]
     Active Substance: GEMTUZUMAB OZOGAMICIN
     Indication: ACUTE MYELOID LEUKAEMIA
     Dosage: 5 MG, SINGLE (DOSE 1)
     Route: 042
     Dates: start: 20160722, end: 20160722
  3. MYLOTARG [Suspect]
     Active Substance: GEMTUZUMAB OZOGAMICIN
     Dosage: 5 MG, CYCLIC (DOSE 3)
     Route: 042
     Dates: start: 20160728, end: 20160728
  4. ROBITUSSIN AC /00693301/ [Concomitant]
     Indication: COUGH
  5. MYLOTARG [Suspect]
     Active Substance: GEMTUZUMAB OZOGAMICIN
     Dosage: 5 MG, SINGLE (DOSE 2)
     Route: 042
     Dates: start: 20160725, end: 20160725
  6. ROBITUSSIN AC /00693301/ [Concomitant]
     Indication: NASOPHARYNGITIS
     Dosage: UNK
     Dates: start: 20160723
  7. INVANZ [Concomitant]
     Active Substance: ERTAPENEM SODIUM
     Indication: NEUTROPENIA
     Dosage: UNK
     Dates: start: 20160422
  8. SYNTHROID [Concomitant]
     Active Substance: LEVOTHYROXINE SODIUM
     Indication: HYPOTHYROIDISM
     Dosage: UNK
     Dates: start: 20160425
  9. SODIUM CHLORIDE. [Concomitant]
     Active Substance: SODIUM CHLORIDE
     Indication: NASAL DRYNESS
     Dosage: NASAL SPRAY 0.65%
     Dates: start: 20160728
  10. ATIVAN [Concomitant]
     Active Substance: LORAZEPAM
     Indication: NAUSEA
     Dosage: UNK
     Dates: start: 20160413
  11. ALLOPURINOL. [Concomitant]
     Active Substance: ALLOPURINOL
     Indication: PROPHYLAXIS
     Dosage: UNK
     Dates: start: 20160724, end: 20160727
  12. ARTIFICIAL TEARS /00222401/ [Concomitant]
     Active Substance: PROPYLENE GLYCOL
     Indication: DRY EYE
     Dosage: UNK
     Dates: start: 20160404
  13. LEVAQUIN [Concomitant]
     Active Substance: LEVOFLOXACIN
     Indication: ANTI-INFECTIVE THERAPY
     Dosage: UNK
     Dates: start: 20160804
  14. K-DUR [Concomitant]
     Active Substance: POTASSIUM CHLORIDE
     Indication: MINERAL SUPPLEMENTATION
     Dosage: UNK
     Dates: start: 20160801
  15. VITAMIN D /00107901/ [Concomitant]
     Active Substance: ERGOCALCIFEROL
     Indication: SUPPLEMENTATION THERAPY
     Dosage: 50000 IU, UNK
     Dates: start: 20160705
  16. ZOVIRAX [Concomitant]
     Active Substance: ACYCLOVIR
     Indication: ANTIFUNGAL PROPHYLAXIS
     Dosage: UNK
     Dates: start: 20160413
  17. REFRESH PLUS [Concomitant]
     Active Substance: CARBOXYMETHYLCELLULOSE SODIUM
     Indication: DRY EYE
     Dosage: UNK
     Dates: start: 20160413
  18. VFEND [Concomitant]
     Active Substance: VORICONAZOLE
     Indication: ANTIFUNGAL TREATMENT
     Dosage: UNK
     Dates: start: 20160621
  19. TESSALON [Concomitant]
     Active Substance: BENZONATATE
     Indication: COUGH
     Dosage: UNK
     Dates: start: 20160722
  20. RESTORIL [Concomitant]
     Active Substance: TEMAZEPAM
     Indication: SLEEP DISORDER
     Dosage: UNK
     Dates: start: 20160507
  21. NORVASC [Concomitant]
     Active Substance: AMLODIPINE BESYLATE
     Dosage: UNK
     Dates: start: 20150629
  22. BACTRIM DS [Concomitant]
     Active Substance: SULFAMETHOXAZOLE\TRIMETHOPRIM
     Indication: ANTI-INFECTIVE THERAPY
     Dosage: UNK
     Dates: start: 20160728

REACTIONS (2)
  - Anaemia [Recovered/Resolved]
  - White blood cell count decreased [Recovered/Resolved]

NARRATIVE: CASE EVENT DATE: 20160805
